FAERS Safety Report 24237307 (Version 2)
Quarter: 2024Q3

REPORT INFORMATION
  Report Type: Report from Study
  Country: US (occurrence: US)
  Receive Date: 20240822
  Receipt Date: 20240831
  Transmission Date: 20241017
  Serious: Yes (Death)
  Sender: AMNEAL
  Company Number: US-AMNEAL PHARMACEUTICALS-2024-AMRX-03029

PATIENT
  Age: 71 Year
  Sex: Male
  Weight: 90.703 kg

DRUGS (5)
  1. CARBIDOPA\LEVODOPA [Suspect]
     Active Substance: CARBIDOPA\LEVODOPA
     Indication: Product used for unknown indication
     Dosage: 3 CAPS (36.25-145 MG) IN THE AM AND AT NOON AND 4 CAPS AT BEDTIME
     Route: 048
  2. CARBIDOPA\LEVODOPA [Suspect]
     Active Substance: CARBIDOPA\LEVODOPA
     Dosage: UNK (DOSE CHANGED)
     Route: 048
  3. CARBIDOPA\LEVODOPA [Suspect]
     Active Substance: CARBIDOPA\LEVODOPA
     Dosage: TAKE 2 CAPSULES (48.75-195MG) BY MOUTH FOUR TIMES A DAY
     Route: 048
  4. CARBIDOPA\LEVODOPA [Suspect]
     Active Substance: CARBIDOPA\LEVODOPA
     Dosage: 3 CAPSULES (36.25-145 MG), 4 /DAY
     Route: 048
     Dates: start: 20231206
  5. CARBIDOPA\LEVODOPA [Suspect]
     Active Substance: CARBIDOPA\LEVODOPA
     Dosage: 2 CAPSULES (61.25/245 MG), 4 /DAY (AT 6 AM, 11 AM, 4 PM AND 9 PM)
     Route: 048
     Dates: start: 20240228

REACTIONS (1)
  - Death [Fatal]

NARRATIVE: CASE EVENT DATE: 20240707
